FAERS Safety Report 4646746-1 (Version None)
Quarter: 2005Q2

REPORT INFORMATION
  Report Type: 
  Country: None (occurrence: None)
  Receive Date: 20050422
  Receipt Date: 20050422
  Transmission Date: 20051028
  Serious: Yes (Hospitalization)
  Sender: FDA-Public Use
  Company Number: None

PATIENT
  Age: 44 Year
  Sex: Male
  Weight: 81.1 kg

DRUGS (2)
  1. SUSTIVA [Suspect]
     Indication: HIV INFECTION
     Dosage: 600MG, QHS, PO
     Route: 048
     Dates: start: 20040503, end: 20050301
  2. VIRAMUNE [Suspect]
     Indication: HIV INFECTION
     Dosage: 200MG, QD, PO
     Route: 048
     Dates: start: 20050302, end: 20050318

REACTIONS (8)
  - CONFUSIONAL STATE [None]
  - DELIRIUM [None]
  - DELUSION [None]
  - DISORIENTATION [None]
  - INSOMNIA [None]
  - PERSONALITY CHANGE [None]
  - SLEEP DISORDER [None]
  - THINKING ABNORMAL [None]
